FAERS Safety Report 24574930 (Version 2)
Quarter: 2024Q4

REPORT INFORMATION
  Report Type: Spontaneous
  Country: JP (occurrence: JP)
  Receive Date: 20241104
  Receipt Date: 20241108
  Transmission Date: 20250115
  Serious: Yes (Hospitalization)
  Sender: Haleon PLC
  Company Number: JP-HALEON-2205626

PATIENT
  Age: 5 Decade
  Sex: Male

DRUGS (1)
  1. ALLI [Suspect]
     Active Substance: ORLISTAT
     Indication: Product used for unknown indication
     Dosage: TIME INTERVAL: AS NECESSARY: 18 CAPSULES, STATUS OF USE: UNKNOWN, 1-DAY USE (1 DOSE X ONE DAY FRE...
     Route: 048
     Dates: start: 202406

REACTIONS (1)
  - Liver disorder [Not Recovered/Not Resolved]
